FAERS Safety Report 7320550-8 (Version None)
Quarter: 2011Q1

REPORT INFORMATION
  Report Type: 
  Country: None (occurrence: None)
  Receive Date: 20110228
  Receipt Date: 20110217
  Transmission Date: 20110831
  Serious: Yes (Death, Hospitalization, Other)
  Sender: FDA-Public Use
  Company Number: JP-JNJFOC-20100406004

PATIENT
  Sex: Female
  Weight: 47 kg

DRUGS (6)
  1. REMICADE [Suspect]
     Indication: RHEUMATOID ARTHRITIS
     Dosage: 13 TOTAL DOSES
     Route: 042
  2. RHEUMATREX [Suspect]
     Indication: RHEUMATOID ARTHRITIS
     Route: 048
     Dates: start: 20020101
  3. PRELONE [Suspect]
     Indication: RHEUMATOID ARTHRITIS
     Route: 048
     Dates: start: 20020101
  4. REMICADE [Suspect]
     Route: 042
  5. ENBREL [Suspect]
     Indication: RHEUMATOID ARTHRITIS
     Route: 058
  6. TOCILIZUMAB [Concomitant]

REACTIONS (5)
  - METASTASES TO LIVER [None]
  - BRAIN NEOPLASM [None]
  - LUNG CANCER METASTATIC [None]
  - ANGIOSARCOMA [None]
  - BRAIN ABSCESS [None]
